FAERS Safety Report 4411829-8 (Version None)
Quarter: 2004Q3

REPORT INFORMATION
  Report Type: 
  Country: None (occurrence: None)
  Receive Date: 20040729
  Receipt Date: 20040729
  Transmission Date: 20050211
  Serious: Yes (Hospitalization)
  Sender: FDA-Public Use
  Company Number: None

PATIENT
  Sex: Male
  Weight: 65.318 kg

DRUGS (1)
  1. XELODA [Suspect]
     Indication: PANCREATIC CARCINOMA
     Dosage: 2000 MG/M2 DAY
     Dates: start: 20040705, end: 20040718

REACTIONS (3)
  - ASCITES [None]
  - HAEMOGLOBIN DECREASED [None]
  - WEIGHT INCREASED [None]
